FAERS Safety Report 9631326 (Version 1)
Quarter: 2013Q4

REPORT INFORMATION
  Report Type: Report from Study
  Country: CA (occurrence: CA)
  Receive Date: 20131018
  Receipt Date: 20131018
  Transmission Date: 20140711
  Serious: Yes (Other)
  Sender: FDA-Public Use
  Company Number: PHHY2013CA116551

PATIENT
  Age: 80 Year
  Sex: Male

DRUGS (4)
  1. SANDOSTATIN LAR [Suspect]
     Indication: ANGIODYSPLASIA
     Dosage: 20 MG, QMO
     Route: 030
     Dates: start: 20120409
  2. VALTREX [Concomitant]
     Dosage: 500 MG, BID
  3. LIDOCAINE [Concomitant]
  4. FLEX O FLEX EXTRA FORT [Concomitant]

REACTIONS (4)
  - Herpes zoster [Unknown]
  - Burning sensation [Unknown]
  - Blister [Unknown]
  - Pain [Unknown]
